FAERS Safety Report 13508847 (Version 1)
Quarter: 2017Q2

REPORT INFORMATION
  Report Type: Report from Study
  Country: JP (occurrence: JP)
  Receive Date: 20170503
  Receipt Date: 20170503
  Transmission Date: 20170830
  Serious: Yes (Other)
  Sender: FDA-Public Use
  Company Number: JP-INCYTE CORPORATION-2016IN003754

PATIENT
  Age: 71 Year
  Sex: Male
  Weight: 56 kg

DRUGS (10)
  1. JAKAVI [Suspect]
     Active Substance: RUXOLITINIB
     Dosage: 5 MG, QD
     Route: 048
     Dates: start: 20160815
  2. HYDREA [Concomitant]
     Active Substance: HYDROXYUREA
     Dosage: 500 MG, UNK
     Route: 048
     Dates: start: 20160119, end: 20160304
  3. HYDREA [Concomitant]
     Active Substance: HYDROXYUREA
     Indication: MYELODYSPLASTIC SYNDROME
     Dosage: UNKNOWN
     Dates: start: 20160119
  4. HYDREA [Concomitant]
     Active Substance: HYDROXYUREA
     Dosage: 500 MG, UNK
     Route: 048
     Dates: start: 20160816
  5. JAKAVI [Suspect]
     Active Substance: RUXOLITINIB
     Indication: MYELODYSPLASTIC SYNDROME
     Dosage: 5 MG, BID
     Route: 048
     Dates: start: 20151006, end: 20151021
  6. JAKAVI [Suspect]
     Active Substance: RUXOLITINIB
     Indication: MYELOPROLIFERATIVE NEOPLASM
     Dosage: 5 MG, QD
     Route: 048
     Dates: start: 20151023, end: 20151207
  7. JAKAVI [Suspect]
     Active Substance: RUXOLITINIB
     Dosage: 5 MG, BID
     Route: 048
     Dates: start: 20150105, end: 20160815
  8. HYDREA [Concomitant]
     Active Substance: HYDROXYUREA
     Dosage: 250 MG, UNK
     Route: 048
     Dates: start: 20160712, end: 20160726
  9. JAKAVI [Suspect]
     Active Substance: RUXOLITINIB
     Dosage: 3.75 MG, BID
     Route: 048
     Dates: start: 20151208, end: 20160104
  10. HYDREA [Concomitant]
     Active Substance: HYDROXYUREA
     Indication: MYELOPROLIFERATIVE NEOPLASM
     Dosage: 750 MG, UNK
     Route: 048
     Dates: start: 20160405

REACTIONS (5)
  - Platelet count decreased [Recovering/Resolving]
  - Myeloproliferative neoplasm [Not Recovered/Not Resolved]
  - Product use issue [Unknown]
  - Anaemia [Recovering/Resolving]
  - Myelodysplastic syndrome [Not Recovered/Not Resolved]

NARRATIVE: CASE EVENT DATE: 20151021
